FAERS Safety Report 18260262 (Version 1)
Quarter: 2020Q3

REPORT INFORMATION
  Report Type: Spontaneous
  Country: US (occurrence: US)
  Receive Date: 20200914
  Receipt Date: 20200914
  Transmission Date: 20201103
  Serious: Yes (Other)
  Sender: FDA-Public Use
  Company Number: US-AUROBINDO-AUR-APL-2010-00935

PATIENT
  Age: 43 Year
  Sex: Male
  Weight: 105.9 kg

DRUGS (1)
  1. MIRTAZAPINE. [Suspect]
     Active Substance: MIRTAZAPINE
     Indication: MAJOR DEPRESSION
     Dosage: 15 MILLIGRAM, AT BEDTIME
     Route: 065

REACTIONS (3)
  - Abnormal dreams [Recovered/Resolved]
  - Dissociative disorder [Unknown]
  - Acute psychosis [Unknown]
